FAERS Safety Report 6854573-X (Version None)
Quarter: 2010Q3

REPORT INFORMATION
  Report Type: 
  Country: None (occurrence: None)
  Receive Date: 20100717
  Receipt Date: 20080110
  Transmission Date: 20110219
  Serious: No
  Sender: FDA-Public Use
  Company Number: US-PFIZER INC-2008003099

PATIENT
  Sex: Female
  Weight: 72.6 kg

DRUGS (5)
  1. CHANTIX [Suspect]
     Indication: SMOKING CESSATION THERAPY
     Dates: start: 20071001
  2. QUINAPRIL [Concomitant]
     Indication: HYPERTENSION
  3. ESTRATEST [Concomitant]
     Indication: HORMONE REPLACEMENT THERAPY
  4. PROVERA [Concomitant]
     Indication: HORMONE REPLACEMENT THERAPY
  5. DIURETICS [Concomitant]
     Indication: HYPERTENSION

REACTIONS (2)
  - DIZZINESS [None]
  - HEADACHE [None]
